FAERS Safety Report 24425449 (Version 1)
Quarter: 2024Q4

REPORT INFORMATION
  Report Type: Spontaneous
  Country: US (occurrence: US)
  Receive Date: 20241011
  Receipt Date: 20241011
  Transmission Date: 20250115
  Serious: No
  Sender: SANDOZ
  Company Number: US-GLAXOSMITHKLINE-USCH2023062906

PATIENT
  Sex: Female

DRUGS (1)
  1. VOLTAREN [Suspect]
     Active Substance: DICLOFENAC SODIUM
     Indication: Product used for unknown indication
     Dosage: UNK (350G CLUB PACK 2 X 150G + 1 X 50G.)
     Route: 065

REACTIONS (3)
  - Gait inability [Unknown]
  - Ill-defined disorder [Unknown]
  - Product administered at inappropriate site [Unknown]
